FAERS Safety Report 26118209 (Version 1)
Quarter: 2025Q4

REPORT INFORMATION
  Report Type: Spontaneous
  Country: EU (occurrence: EU)
  Receive Date: 20251203
  Receipt Date: 20251203
  Transmission Date: 20260117
  Serious: Yes (Hospitalization)
  Sender: MYLAN
  Company Number: None

PATIENT
  Age: 53 Year
  Sex: Female
  Weight: 91.4 kg

DRUGS (48)
  1. VENLAFAXINE [Suspect]
     Active Substance: VENLAFAXINE HYDROCHLORIDE
     Indication: Depression
     Dosage: 150 MILLIGRAM, QD
     Dates: start: 202405, end: 20240807
  2. VENLAFAXINE [Suspect]
     Active Substance: VENLAFAXINE HYDROCHLORIDE
     Dosage: 150 MILLIGRAM, QD
     Route: 048
     Dates: start: 202405, end: 20240807
  3. VENLAFAXINE [Suspect]
     Active Substance: VENLAFAXINE HYDROCHLORIDE
     Dosage: 150 MILLIGRAM, QD
     Route: 048
     Dates: start: 202405, end: 20240807
  4. VENLAFAXINE [Suspect]
     Active Substance: VENLAFAXINE HYDROCHLORIDE
     Dosage: 150 MILLIGRAM, QD
     Dates: start: 202405, end: 20240807
  5. GABAPENTIN [Suspect]
     Active Substance: GABAPENTIN
     Indication: Fibromyalgia
     Dosage: 1200 MILLIGRAM, Q8H
     Dates: start: 202405, end: 20240810
  6. GABAPENTIN [Suspect]
     Active Substance: GABAPENTIN
     Dosage: 1200 MILLIGRAM, Q8H
     Route: 048
     Dates: start: 202405, end: 20240810
  7. GABAPENTIN [Suspect]
     Active Substance: GABAPENTIN
     Dosage: 1200 MILLIGRAM, Q8H
     Route: 048
     Dates: start: 202405, end: 20240810
  8. GABAPENTIN [Suspect]
     Active Substance: GABAPENTIN
     Dosage: 1200 MILLIGRAM, Q8H
     Dates: start: 202405, end: 20240810
  9. SKENAN [Concomitant]
     Active Substance: MORPHINE SULFATE
     Indication: Fibromyalgia
     Dosage: 200 MILLIGRAM, BID (12 HOURS, PROLONGED-RELEASE MICROGRANULES IN CAPSULES)
  10. SKENAN [Concomitant]
     Active Substance: MORPHINE SULFATE
     Dosage: 200 MILLIGRAM, BID (12 HOURS, PROLONGED-RELEASE MICROGRANULES IN CAPSULES)
     Route: 048
  11. SKENAN [Concomitant]
     Active Substance: MORPHINE SULFATE
     Dosage: 200 MILLIGRAM, BID (12 HOURS, PROLONGED-RELEASE MICROGRANULES IN CAPSULES)
     Route: 048
  12. SKENAN [Concomitant]
     Active Substance: MORPHINE SULFATE
     Dosage: 200 MILLIGRAM, BID (12 HOURS, PROLONGED-RELEASE MICROGRANULES IN CAPSULES)
  13. MORPHINE SULFATE [Concomitant]
     Active Substance: MORPHINE SULFATE
     Indication: Fibromyalgia
     Dosage: 20 MILLIGRAM
  14. MORPHINE SULFATE [Concomitant]
     Active Substance: MORPHINE SULFATE
     Dosage: 20 MILLIGRAM
     Route: 048
  15. MORPHINE SULFATE [Concomitant]
     Active Substance: MORPHINE SULFATE
     Dosage: 20 MILLIGRAM
     Route: 048
  16. MORPHINE SULFATE [Concomitant]
     Active Substance: MORPHINE SULFATE
     Dosage: 20 MILLIGRAM
  17. ZOPICLONE [Concomitant]
     Active Substance: ZOPICLONE
     Indication: Sleep disorder
     Dosage: 7.5 MILLIGRAM, QD
  18. ZOPICLONE [Concomitant]
     Active Substance: ZOPICLONE
     Dosage: 7.5 MILLIGRAM, QD
     Route: 048
  19. ZOPICLONE [Concomitant]
     Active Substance: ZOPICLONE
     Dosage: 7.5 MILLIGRAM, QD
     Route: 048
  20. ZOPICLONE [Concomitant]
     Active Substance: ZOPICLONE
     Dosage: 7.5 MILLIGRAM, QD
  21. ACETAMINOPHEN\OPIUM [Concomitant]
     Active Substance: ACETAMINOPHEN\OPIUM
     Indication: Fibromyalgia
     Dosage: 1 DOSAGE FORM
  22. ACETAMINOPHEN\OPIUM [Concomitant]
     Active Substance: ACETAMINOPHEN\OPIUM
     Dosage: 1 DOSAGE FORM
     Route: 048
  23. ACETAMINOPHEN\OPIUM [Concomitant]
     Active Substance: ACETAMINOPHEN\OPIUM
     Dosage: 1 DOSAGE FORM
     Route: 048
  24. ACETAMINOPHEN\OPIUM [Concomitant]
     Active Substance: ACETAMINOPHEN\OPIUM
     Dosage: 1 DOSAGE FORM
  25. ALPRAZOLAM [Concomitant]
     Active Substance: ALPRAZOLAM
     Indication: Anxiety
     Dosage: 0.5 MILLIGRAM, QD
     Dates: end: 20240810
  26. ALPRAZOLAM [Concomitant]
     Active Substance: ALPRAZOLAM
     Dosage: 0.5 MILLIGRAM, QD
     Route: 048
     Dates: end: 20240810
  27. ALPRAZOLAM [Concomitant]
     Active Substance: ALPRAZOLAM
     Dosage: 0.5 MILLIGRAM, QD
     Route: 048
     Dates: end: 20240810
  28. ALPRAZOLAM [Concomitant]
     Active Substance: ALPRAZOLAM
     Dosage: 0.5 MILLIGRAM, QD
     Dates: end: 20240810
  29. LANSOPRAZOLE [Concomitant]
     Active Substance: LANSOPRAZOLE
     Indication: Product used for unknown indication
     Dosage: 30 MILLIGRAM, BID (12 HOURS)
  30. LANSOPRAZOLE [Concomitant]
     Active Substance: LANSOPRAZOLE
     Dosage: 30 MILLIGRAM, BID (12 HOURS)
     Route: 048
  31. LANSOPRAZOLE [Concomitant]
     Active Substance: LANSOPRAZOLE
     Dosage: 30 MILLIGRAM, BID (12 HOURS)
     Route: 048
  32. LANSOPRAZOLE [Concomitant]
     Active Substance: LANSOPRAZOLE
     Dosage: 30 MILLIGRAM, BID (12 HOURS)
  33. TRIMEPRAZINE [Concomitant]
     Active Substance: TRIMEPRAZINE
     Indication: Sleep disorder
     Dosage: 10 MILLIGRAM, QD (FILM-COATED SCORED TABLET)
  34. TRIMEPRAZINE [Concomitant]
     Active Substance: TRIMEPRAZINE
     Dosage: 10 MILLIGRAM, QD (FILM-COATED SCORED TABLET)
     Route: 048
  35. TRIMEPRAZINE [Concomitant]
     Active Substance: TRIMEPRAZINE
     Dosage: 10 MILLIGRAM, QD (FILM-COATED SCORED TABLET)
     Route: 048
  36. TRIMEPRAZINE [Concomitant]
     Active Substance: TRIMEPRAZINE
     Dosage: 10 MILLIGRAM, QD (FILM-COATED SCORED TABLET)
  37. CHOLECALCIFEROL [Concomitant]
     Active Substance: CHOLECALCIFEROL
     Indication: Vitamin supplementation
     Dosage: 1 DOSAGE FORM, MONTHLY
  38. CHOLECALCIFEROL [Concomitant]
     Active Substance: CHOLECALCIFEROL
     Dosage: 1 DOSAGE FORM, MONTHLY
     Route: 048
  39. CHOLECALCIFEROL [Concomitant]
     Active Substance: CHOLECALCIFEROL
     Dosage: 1 DOSAGE FORM, MONTHLY
     Route: 048
  40. CHOLECALCIFEROL [Concomitant]
     Active Substance: CHOLECALCIFEROL
     Dosage: 1 DOSAGE FORM, MONTHLY
  41. IBUPROFEN SODIUM [Concomitant]
     Active Substance: IBUPROFEN SODIUM
     Indication: Product used for unknown indication
     Dosage: 1 DOSAGE FORM
  42. IBUPROFEN SODIUM [Concomitant]
     Active Substance: IBUPROFEN SODIUM
     Dosage: 1 DOSAGE FORM
     Route: 048
  43. IBUPROFEN SODIUM [Concomitant]
     Active Substance: IBUPROFEN SODIUM
     Dosage: 1 DOSAGE FORM
     Route: 048
  44. IBUPROFEN SODIUM [Concomitant]
     Active Substance: IBUPROFEN SODIUM
     Dosage: 1 DOSAGE FORM
  45. ACETAMINOPHEN [Concomitant]
     Active Substance: ACETAMINOPHEN
     Indication: Pain
     Dosage: 1 GRAM
  46. ACETAMINOPHEN [Concomitant]
     Active Substance: ACETAMINOPHEN
     Dosage: 1 GRAM
     Route: 048
  47. ACETAMINOPHEN [Concomitant]
     Active Substance: ACETAMINOPHEN
     Dosage: 1 GRAM
     Route: 048
  48. ACETAMINOPHEN [Concomitant]
     Active Substance: ACETAMINOPHEN
     Dosage: 1 GRAM

REACTIONS (1)
  - Adrenergic syndrome [Recovered/Resolved]

NARRATIVE: CASE EVENT DATE: 20240806
